FAERS Safety Report 9262897 (Version 2)
Quarter: 2013Q3

REPORT INFORMATION
  Report Type: Spontaneous
  Country: CA (occurrence: CA)
  Receive Date: 20130430
  Receipt Date: 20130917
  Transmission Date: 20140515
  Serious: Yes (Other)
  Sender: FDA-Public Use
  Company Number: CA-PFIZER INC-2013130050

PATIENT
  Sex: Female

DRUGS (1)
  1. TECTA [Suspect]
     Dosage: UNK
     Route: 048

REACTIONS (1)
  - Dyspnoea [Unknown]
